FAERS Safety Report 13997005 (Version 1)
Quarter: 2017Q3

REPORT INFORMATION
  Report Type: Spontaneous
  Country: TW (occurrence: TW)
  Receive Date: 20170921
  Receipt Date: 20170921
  Transmission Date: 20171128
  Serious: Yes (Hospitalization)
  Sender: FDA-Public Use
  Company Number: TW-ASTELLAS-2017US037620

PATIENT
  Age: 20 Year
  Sex: Male

DRUGS (4)
  1. PROGRAF [Suspect]
     Active Substance: TACROLIMUS\TACROLIMUS ANHYDROUS
     Dosage: 16MG (DAILY DOSE), TWICE DAILY
     Route: 048
     Dates: start: 20170911, end: 20170914
  2. PROGRAF [Suspect]
     Active Substance: TACROLIMUS\TACROLIMUS ANHYDROUS
     Dosage: 24MG (DAILY DOSE), TWICE DAILY
     Route: 048
     Dates: start: 20170914
  3. PROGRAF [Suspect]
     Active Substance: TACROLIMUS\TACROLIMUS ANHYDROUS
     Indication: PROPHYLAXIS AGAINST TRANSPLANT REJECTION
     Dosage: 10 MG (DAILY DOSE), TWICE DAILY
     Route: 048
     Dates: start: 20170906, end: 20170911
  4. MYCOPHENOLATE MOFETIL. [Concomitant]
     Active Substance: MYCOPHENOLATE MOFETIL
     Indication: PROPHYLAXIS AGAINST TRANSPLANT REJECTION
     Dosage: 1500MG (DAILY DOSE), TWICE DAILY
     Route: 048
     Dates: start: 201709

REACTIONS (1)
  - Immunosuppressant drug level decreased [Not Recovered/Not Resolved]

NARRATIVE: CASE EVENT DATE: 20170906
